FAERS Safety Report 7018684-0 (Version None)
Quarter: 2010Q3

REPORT INFORMATION
  Report Type: 
  Country: None (occurrence: None)
  Receive Date: 20100922
  Receipt Date: 20100909
  Transmission Date: 20110219
  Serious: Yes (Other)
  Sender: FDA-Public Use
  Company Number: 2010AP001875

PATIENT
  Age: 64 Year
  Sex: Female

DRUGS (10)
  1. FLUCONAZOLE [Suspect]
     Indication: VULVOVAGINAL CANDIDIASIS
     Dosage: PO
     Route: 048
  2. LEVOTHYROXINE [Concomitant]
  3. MULTI-VITAMINS [Concomitant]
  4. CALCIUM COMPOUNDS [Concomitant]
  5. QUININE [Concomitant]
  6. CYCLOBENZAPRINE [Concomitant]
  7. PREGABALIN [Concomitant]
  8. METHOCARBAMOL [Concomitant]
  9. ACETAMINOPHEN [Concomitant]
  10. DEXTROPROPOXYPHENE [Concomitant]

REACTIONS (1)
  - DRUG ERUPTION [None]
